FAERS Safety Report 16319782 (Version 1)
Quarter: 2019Q2

REPORT INFORMATION
  Report Type: Spontaneous
  Country: US (occurrence: US)
  Receive Date: 20190410
  Receipt Date: 20190410
  Transmission Date: 20190711
  Serious: No
  Sender: FDA-Public Use
  Company Number: None

PATIENT
  Age: 67 Year
  Sex: Female
  Weight: 78.93 kg

DRUGS (2)
  1. TYMLOS [Suspect]
     Active Substance: ABALOPARATIDE
     Indication: SENILE OSTEOPOROSIS
     Route: 058
     Dates: start: 201904
  2. TYMLOS [Suspect]
     Active Substance: ABALOPARATIDE
     Indication: RHEUMATOID ARTHRITIS
     Route: 058
     Dates: start: 201904

REACTIONS (9)
  - Dry skin [None]
  - Dandruff [None]
  - Eye irritation [None]
  - Candida infection [None]
  - Skin exfoliation [None]
  - Oral mucosal eruption [None]
  - Eye swelling [None]
  - Headache [None]
  - Protein total abnormal [None]
